FAERS Safety Report 7511576-X (Version None)
Quarter: 2011Q2

REPORT INFORMATION
  Report Type: 
  Country: None (occurrence: None)
  Receive Date: 20110531
  Receipt Date: 20110523
  Transmission Date: 20111010
  Serious: Yes (Death, Other)
  Sender: FDA-Public Use
  Company Number: US-PFIZER INC-2011095016

PATIENT
  Sex: Male

DRUGS (2)
  1. VFEND [Suspect]
     Dosage: 50 MG, 2X/DAY
  2. VFEND [Suspect]
     Indication: LUNG DISORDER
     Dosage: 200 MG, 2X/DAY
     Dates: start: 20090722

REACTIONS (2)
  - DEATH [None]
  - ASPERGILLUS TEST POSITIVE [None]
